FAERS Safety Report 7807463-X (Version None)
Quarter: 2011Q4

REPORT INFORMATION
  Report Type: 
  Country: None (occurrence: None)
  Receive Date: 20111011
  Receipt Date: 20111003
  Transmission Date: 20120403
  Serious: Yes (Other)
  Sender: FDA-Public Use
  Company Number: PHHY2011CA31926

PATIENT
  Sex: Female

DRUGS (4)
  1. SANDOSTATIN LAR [Suspect]
     Dosage: 60 MG, QW4
     Route: 030
  2. AFINITOR [Suspect]
     Indication: NEUROENDOCRINE CARCINOMA
     Dosage: 10 MG, QD
     Route: 048
     Dates: start: 20110225
  3. SANDOSTATIN LAR [Suspect]
     Indication: NEUROENDOCRINE CARCINOMA
     Dosage: 30 MG, QW4
     Route: 030
     Dates: start: 20070704
  4. SANDOSTATIN LAR [Suspect]
     Dosage: 30 MG, QW3
     Route: 030
     Dates: start: 20070704

REACTIONS (11)
  - MALAISE [None]
  - ABDOMINAL DISCOMFORT [None]
  - CYSTITIS [None]
  - CHILLS [None]
  - DYSURIA [None]
  - ABDOMINAL PAIN [None]
  - DECREASED APPETITE [None]
  - URINARY TRACT INFECTION [None]
  - LETHARGY [None]
  - FEELING ABNORMAL [None]
  - ASTHENIA [None]
